FAERS Safety Report 9217112 (Version 1)
Quarter: 2013Q2

REPORT INFORMATION
  Report Type: Spontaneous
  Country: US (occurrence: US)
  Receive Date: 20130408
  Receipt Date: 20130408
  Transmission Date: 20140414
  Serious: No
  Sender: FDA-Public Use
  Company Number: US-009507513-1304USA001794

PATIENT
  Sex: Female

DRUGS (1)
  1. CLARINEX-D-12 [Suspect]
     Dosage: 2 DF,BID ON WORKING DAYS AND 2 DF, QD ON HER DAYS OFF
     Route: 048
     Dates: start: 201303

REACTIONS (2)
  - Inappropriate schedule of drug administration [Unknown]
  - No adverse event [Unknown]
